FAERS Safety Report 9196935 (Version 2)
Quarter: 2013Q4

REPORT INFORMATION
  Report Type: Spontaneous
  Country: US (occurrence: US)
  Receive Date: 20130328
  Receipt Date: 20131202
  Transmission Date: 20140711
  Serious: Yes (Other)
  Sender: FDA-Public Use
  Company Number: US-BAYER-2013-038466

PATIENT
  Age: 15 Year
  Sex: Female

DRUGS (10)
  1. YAZ [Suspect]
  2. YASMIN [Suspect]
  3. OCELLA [Suspect]
  4. CARISOPRODOL [Concomitant]
     Dosage: 350 MG, UNK
     Route: 048
     Dates: start: 20080822
  5. PROMETHAZINE [Concomitant]
     Dosage: 25 MG, UNK
     Route: 048
     Dates: start: 20090917, end: 20091016
  6. FLUOXETINE [Concomitant]
     Dosage: 20 MG, UNK
     Route: 048
     Dates: start: 20091001
  7. TRAZODONE [Concomitant]
     Dosage: 50 MG, UNK
     Route: 048
     Dates: start: 20091001
  8. BUSPIRONE [Concomitant]
     Dosage: 10 MG, UNK
     Route: 048
     Dates: start: 20091001
  9. DIPHENOXYLATE/ATROPINE [DIPHENOXYLATE HYDROCHLORIDE] [Concomitant]
     Dosage: 2.5 MG, UNK
     Route: 048
     Dates: start: 20091012
  10. NEXIUM [Concomitant]
     Dosage: 40 MG, UNK
     Route: 048
     Dates: start: 20091030

REACTIONS (6)
  - Gallbladder injury [None]
  - Injury [None]
  - Pain [None]
  - Pain [None]
  - Cholecystitis [None]
  - Biliary dyskinesia [None]
